FAERS Safety Report 6100868-7 (Version None)
Quarter: 2009Q1

REPORT INFORMATION
  Report Type: 
  Country: None (occurrence: None)
  Receive Date: 20090304
  Receipt Date: 20090218
  Transmission Date: 20090719
  Serious: Yes (Other)
  Sender: FDA-Public Use
  Company Number: PHHY2009JP06068

PATIENT

DRUGS (2)
  1. DIOVAN [Suspect]
     Indication: HYPERTENSION
     Dosage: 160 MG, UNK
     Route: 048
     Dates: start: 20090201
  2. FLUITRAN [Suspect]
     Dosage: UNK
     Route: 048
     Dates: start: 20090201

REACTIONS (1)
  - ATRIOVENTRICULAR BLOCK [None]
